FAERS Safety Report 7439494-6 (Version None)
Quarter: 2011Q2

REPORT INFORMATION
  Report Type: 
  Country: None (occurrence: None)
  Receive Date: 20110427
  Receipt Date: 20110408
  Transmission Date: 20111010
  Serious: Yes (Hospitalization)
  Sender: FDA-Public Use
  Company Number: BR-EISAI INC-E3810-04539-CLI-BR

PATIENT
  Sex: Female

DRUGS (1)
  1. RABEPRAZOLE SODIUM [Suspect]
     Dosage: EVENT DURING SCREENING
     Route: 048

REACTIONS (2)
  - GASTROENTERITIS [None]
  - UPPER RESPIRATORY TRACT INFECTION [None]
